FAERS Safety Report 6419799-8 (Version None)
Quarter: 2009Q4

REPORT INFORMATION
  Report Type: 
  Country: None (occurrence: None)
  Receive Date: 20091013
  Receipt Date: 20081216
  Transmission Date: 20100525
  Serious: Yes (Other)
  Sender: FDA-Public Use
  Company Number: 1000003119

PATIENT
  Sex: Female

DRUGS (2)
  1. LEXAPRO [Suspect]
     Indication: DEPRESSION
     Dosage: SEE IMAGE
     Route: 048
     Dates: start: 20080301, end: 20080101
  2. LEXAPRO [Suspect]
     Indication: DEPRESSION
     Dosage: SEE IMAGE
     Route: 048
     Dates: start: 20080101, end: 20081029

REACTIONS (10)
  - DEPRESSED MOOD [None]
  - DEPRESSION [None]
  - FEELING OF BODY TEMPERATURE CHANGE [None]
  - HYPERHIDROSIS [None]
  - INFLUENZA LIKE ILLNESS [None]
  - OVERDOSE [None]
  - PAIN [None]
  - PARAESTHESIA [None]
  - SUICIDAL IDEATION [None]
  - WITHDRAWAL SYNDROME [None]
